FAERS Safety Report 11678412 (Version 1)
Quarter: 2015Q4

REPORT INFORMATION
  Report Type: Spontaneous
  Country: US (occurrence: US)
  Receive Date: 20151027
  Receipt Date: 20151027
  Transmission Date: 20160304
  Serious: No
  Sender: FDA-Public Use
  Company Number: US-ELI_LILLY_AND_COMPANY-US201006005304

PATIENT
  Age: 83 Year
  Sex: Female

DRUGS (2)
  1. FORTEO [Suspect]
     Active Substance: TERIPARATIDE
     Dosage: 20 UG, DAILY (1/D)
  2. FORTEO [Suspect]
     Active Substance: TERIPARATIDE
     Indication: OSTEOPOROSIS
     Dosage: 20 UG, DAILY (1/D)
     Dates: start: 20100429

REACTIONS (11)
  - Visual impairment [Unknown]
  - Asthenia [Unknown]
  - Diarrhoea [Unknown]
  - Dysstasia [Unknown]
  - Middle insomnia [Unknown]
  - Psoriasis [Unknown]
  - Acute sinusitis [Not Recovered/Not Resolved]
  - Paranasal sinus hypersecretion [Unknown]
  - Malaise [Unknown]
  - Hypersensitivity [Unknown]
  - Pain [Unknown]

NARRATIVE: CASE EVENT DATE: 201005
